FAERS Safety Report 19596917 (Version 3)
Quarter: 2021Q3

REPORT INFORMATION
  Report Type: Report from Study
  Country: DE (occurrence: DE)
  Receive Date: 20210722
  Receipt Date: 20210726
  Transmission Date: 20211014
  Serious: Yes (Other)
  Sender: FDA-Public Use
  Company Number: DE-PUMA BIOTECHNOLOGY, LTD.-2020DE008141

PATIENT

DRUGS (8)
  1. LOPERAMID [Concomitant]
     Active Substance: LOPERAMIDE
     Indication: PROPHYLAXIS AGAINST DIARRHOEA
     Dosage: 2 MG (1 TO 4 TIMES PER DAY)
     Route: 048
     Dates: start: 20201005, end: 20210326
  2. NERATINIB [Suspect]
     Active Substance: NERATINIB
     Indication: BREAST CANCER
     Dosage: 120 MG, QD (1/DAY)
     Route: 048
     Dates: start: 20201005, end: 20201011
  3. SYMBICORT [Concomitant]
     Active Substance: BUDESONIDE\FORMOTEROL FUMARATE DIHYDRATE
     Indication: CHRONIC OBSTRUCTIVE PULMONARY DISEASE
     Dosage: 160 UG, QD (1/DAY)
     Route: 055
  4. TAMOXIFEN [Concomitant]
     Active Substance: TAMOXIFEN
     Indication: BREAST CANCER
     Dosage: 20 MG, QD (1/DAY)
     Route: 048
     Dates: start: 201909
  5. NERATINIB [Suspect]
     Active Substance: NERATINIB
     Dosage: 160 MG, QD (1/DAY)
     Route: 048
     Dates: start: 20201012, end: 20201018
  6. NERATINIB [Suspect]
     Active Substance: NERATINIB
     Dosage: 160 MG, QD (1/DAY)
     Route: 048
     Dates: start: 20201120
  7. NERATINIB [Suspect]
     Active Substance: NERATINIB
     Dosage: 240 MG, QD (1/DAY)
     Route: 048
     Dates: start: 20201019, end: 20201119
  8. SYMBICORT [Concomitant]
     Active Substance: BUDESONIDE\FORMOTEROL FUMARATE DIHYDRATE
     Dosage: 160 UG, QD (1/DAY)
     Route: 055

REACTIONS (11)
  - Diarrhoea [Recovered/Resolved]
  - Nasal dryness [Not Recovered/Not Resolved]
  - Diarrhoea [Not Recovered/Not Resolved]
  - Off label use [Unknown]
  - Anal inflammation [Recovered/Resolved]
  - Fatigue [Recovered/Resolved]
  - Aspartate aminotransferase increased [Recovered/Resolved]
  - Vulvovaginal dryness [Recovered/Resolved]
  - Dry eye [Recovered/Resolved]
  - Alanine aminotransferase increased [Recovered/Resolved]
  - Weight decreased [Recovered/Resolved]

NARRATIVE: CASE EVENT DATE: 202010
